FAERS Safety Report 5570595-3 (Version None)
Quarter: 2007Q4

REPORT INFORMATION
  Report Type: 
  Country: None (occurrence: None)
  Receive Date: 20071221
  Receipt Date: 20071212
  Transmission Date: 20080405
  Serious: Yes (Hospitalization)
  Sender: FDA-Public Use
  Company Number: GR-TYCO HEALTHCARE/MALLINCKRODT-T200701550

PATIENT

DRUGS (4)
  1. OPTIRAY 300 [Suspect]
     Indication: ARTERIOGRAM
     Dosage: UNK, SINGLE
     Route: 013
     Dates: start: 20071203, end: 20071203
  2. LASIX [Concomitant]
  3. QUINOLONE NOS [Concomitant]
  4. ORAL ANTIDIABETICS [Concomitant]
     Route: 048

REACTIONS (2)
  - CEREBROVASCULAR ACCIDENT [None]
  - RENAL FAILURE ACUTE [None]
